FAERS Safety Report 8407815-3 (Version None)
Quarter: 2012Q2

REPORT INFORMATION
  Report Type: 
  Country: None (occurrence: None)
  Receive Date: 20120604
  Receipt Date: 20120531
  Transmission Date: 20120825
  Serious: Yes (Death)
  Sender: FDA-Public Use
  Company Number: PHFR2012GB002618

PATIENT
  Sex: Female
  Weight: 73 kg

DRUGS (33)
  1. DIAZEPAM [Concomitant]
  2. BETNOVATE [Concomitant]
  3. CEPHALEXIN [Concomitant]
     Dosage: 1 DF, QID
  4. SUDOCREM [Concomitant]
  5. FEXOFENADINE [Concomitant]
     Dosage: 1 DF, QD
  6. CLARITHROMYCIN [Concomitant]
     Dosage: 2 DF, Q6H
  7. DIPROBASE CREAM [Concomitant]
  8. SODIUM BICARBONATE [Concomitant]
  9. TAMOXIFEN CITRATE [Concomitant]
     Dosage: 1 DF, QD
  10. FUROSEMIDE [Concomitant]
     Dosage: 80 MG, EACH MORNING
  11. PREGABALIN [Concomitant]
     Dosage: 2 DF, UNK
  12. CLOZARIL [Suspect]
     Indication: SCHIZOPHRENIA
     Route: 048
     Dates: start: 20020505
  13. ALENDRONATE SODIUM [Concomitant]
     Dosage: ONE TABLET WEEKLY
  14. BACLOFEN [Concomitant]
     Dosage: 1 DF, QD (I TAB @NIGHT)
  15. ALGESAL [Concomitant]
  16. MOVIPREP [Concomitant]
     Dosage: 1 DF, QD(1SACHET IN MORNING)
  17. FERROUS SULFATE TAB [Concomitant]
     Dosage: 1 DF, TID
  18. MOMETASONE FUROATE [Concomitant]
     Dosage: 1 DF, BID
     Route: 045
  19. ADCAL [Concomitant]
     Dosage: 2 DF, (1 TAB AT LUNCH AND 1 AT TEA)
  20. ZOPICLONE [Concomitant]
     Dosage: 1 DF, (1 TAB AT BEDTIME)
  21. ERYTHROMYCIN [Concomitant]
     Dosage: 2 DF, QID
  22. LACTULOSE [Concomitant]
  23. AMOXICILLIN [Concomitant]
     Dosage: 20 ML, TID
  24. TRIMETHOPRIM [Concomitant]
     Dosage: 1 DF, BID
  25. HALOPERIDOL [Concomitant]
     Dosage: 1 DF, UNK
  26. FUCIBET [Concomitant]
  27. ACETAMINOPHEN [Concomitant]
     Dosage: 2 DF, BID
  28. SERTRALINE HYDROCHLORIDE [Concomitant]
     Dosage: 1 DF, QD
  29. ACETAMINOPHEN AND CODEINE PHOSPHATE [Concomitant]
     Dosage: 2 DF, TID
  30. AMITRIPTYLINE HCL [Concomitant]
     Dosage: 1 DF, QD
  31. CARBAMAZEPINE [Concomitant]
     Dosage: 1 DF, BID
  32. LORAZEPAM [Concomitant]
     Dosage: 1 DF, QD
  33. CIPROFLOXACIN [Concomitant]
     Dosage: 1 DF, QD

REACTIONS (11)
  - SCHIZOPHRENIA, PARANOID TYPE [None]
  - RENAL FAILURE CHRONIC [None]
  - PAIN [None]
  - DYSKINESIA [None]
  - SOMNOLENCE [None]
  - NECK PAIN [None]
  - TARDIVE DYSKINESIA [None]
  - GLOMERULAR FILTRATION RATE DECREASED [None]
  - MANIA [None]
  - FACIAL PAIN [None]
  - BRONCHOPNEUMONIA [None]
